FAERS Safety Report 15114448 (Version 1)
Quarter: 2018Q3

REPORT INFORMATION
  Report Type: Report from Study
  Country: CO (occurrence: CO)
  Receive Date: 20180706
  Receipt Date: 20180706
  Transmission Date: 20181010
  Serious: Yes (Other)
  Sender: FDA-Public Use
  Company Number: CO-ASTELLAS-2018US030051

PATIENT
  Sex: Male

DRUGS (2)
  1. TACROLIMUS. [Suspect]
     Active Substance: TACROLIMUS
     Indication: RENAL TRANSPLANT
     Route: 048
     Dates: start: 20090201
  2. TACROLIMUS. [Suspect]
     Active Substance: TACROLIMUS
     Indication: INFECTION PROPHYLAXIS

REACTIONS (4)
  - Renal transplant failure [Not Recovered/Not Resolved]
  - Off label use [Unknown]
  - Product use in unapproved indication [Unknown]
  - Renal impairment [Unknown]
